FAERS Safety Report 25412704 (Version 3)
Quarter: 2025Q4

REPORT INFORMATION
  Report Type: Spontaneous
  Country: JP (occurrence: JP)
  Receive Date: 20250609
  Receipt Date: 20251112
  Transmission Date: 20260119
  Serious: Yes (Hospitalization)
  Sender: ROCHE
  Company Number: JP-ROCHE-10000303462

PATIENT
  Age: 67 Year
  Sex: Female

DRUGS (11)
  1. TOCILIZUMAB [Suspect]
     Active Substance: TOCILIZUMAB
     Indication: Polyarthritis
     Route: 042
  2. TOCILIZUMAB [Suspect]
     Active Substance: TOCILIZUMAB
     Indication: Still^s disease
     Route: 058
  3. TOCILIZUMAB [Suspect]
     Active Substance: TOCILIZUMAB
     Route: 042
  4. METHOTREXATE [Concomitant]
     Active Substance: METHOTREXATE
  5. CYCLOSPORINE [Concomitant]
     Active Substance: CYCLOSPORINE
  6. TACROLIMUS [Concomitant]
     Active Substance: TACROLIMUS
     Indication: Polyarthritis
     Route: 048
  7. BETAMETHASONE [Concomitant]
     Active Substance: BETAMETHASONE
  8. METHYLPREDNISOLONE [Concomitant]
     Active Substance: METHYLPREDNISOLONE
  9. PREDNISOLONE [Concomitant]
     Active Substance: PREDNISOLONE
     Dosage: 2 MG/KG/DAD
  10. PREDNISOLONE [Concomitant]
     Active Substance: PREDNISOLONE
  11. BARICITINIB [Concomitant]
     Active Substance: BARICITINIB
     Indication: Still^s disease

REACTIONS (2)
  - Haemophagocytic lymphohistiocytosis [Recovered/Resolved]
  - Off label use [Unknown]
